FAERS Safety Report 20009148 (Version 1)
Quarter: 2021Q4

REPORT INFORMATION
  Report Type: Spontaneous
  Country: TW (occurrence: TW)
  Receive Date: 20211029
  Receipt Date: 20211029
  Transmission Date: 20220303
  Serious: Yes (Hospitalization)
  Sender: FDA-Public Use
  Company Number: TW-ABBVIE-21K-153-4139790-00

PATIENT
  Age: 41 Year
  Sex: Female
  Weight: 110 kg

DRUGS (7)
  1. HUMIRA [Suspect]
     Active Substance: ADALIMUMAB
     Indication: Ankylosing spondylitis
     Route: 058
     Dates: start: 20181109
  2. ARCOXIA [Concomitant]
     Active Substance: ETORICOXIB
     Indication: Antiinflammatory therapy
     Route: 048
     Dates: start: 20210903, end: 20210904
  3. SULFASALAZINE [Concomitant]
     Active Substance: SULFASALAZINE
     Indication: Immunomodulatory therapy
     Route: 048
     Dates: start: 20210903, end: 20210904
  4. NORVASC [Concomitant]
     Active Substance: AMLODIPINE BESYLATE
     Indication: Hypertension
     Route: 048
     Dates: start: 20210903, end: 20210904
  5. TRAMADOL [Concomitant]
     Active Substance: TRAMADOL
     Indication: Analgesic intervention supportive therapy
     Dosage: Q8H PRN
     Route: 042
     Dates: start: 20210903, end: 20210904
  6. ACETAL [Concomitant]
     Indication: Analgesic therapy
     Dosage: Q6H PRN
     Route: 048
     Dates: start: 20210903, end: 20210904
  7. DEXTROSE [Concomitant]
     Active Substance: DEXTROSE
     Indication: Blood glucose
     Route: 041
     Dates: start: 20210903, end: 20210904

REACTIONS (4)
  - Ureterolithiasis [Recovered/Resolved]
  - Hydronephrosis [Unknown]
  - Urine output decreased [Unknown]
  - Flank pain [Unknown]

NARRATIVE: CASE EVENT DATE: 20210101
